FAERS Safety Report 19652966 (Version 5)
Quarter: 2024Q2

REPORT INFORMATION
  Report Type: Spontaneous
  Country: US (occurrence: US)
  Receive Date: 20210803
  Receipt Date: 20240628
  Transmission Date: 20240716
  Serious: Yes (Hospitalization, Other)
  Sender: FDA-Public Use
  Company Number: US-PFIZER INC-2020287575

PATIENT
  Age: 79 Year
  Sex: Female

DRUGS (3)
  1. XELJANZ XR [Suspect]
     Active Substance: TOFACITINIB CITRATE
     Indication: Rheumatoid arthritis
     Dosage: 11 MG, DAILY
     Route: 048
     Dates: start: 20190625, end: 20200518
  2. XELJANZ XR [Suspect]
     Active Substance: TOFACITINIB CITRATE
     Dosage: 11 MG, DAILY
     Route: 048
     Dates: start: 20200601
  3. XELJANZ XR [Suspect]
     Active Substance: TOFACITINIB CITRATE
     Dosage: 11 MG
     Route: 048

REACTIONS (12)
  - Foot operation [Recovered/Resolved]
  - Hernia [Recovered/Resolved]
  - Spinal fracture [Unknown]
  - Product dose omission in error [Unknown]
  - Product dose omission issue [Unknown]
  - Illness [Unknown]
  - Hypersomnia [Unknown]
  - Rash [Unknown]
  - Pruritus [Unknown]
  - Acne [Unknown]
  - Rosacea [Unknown]
  - Dermatitis contact [Unknown]

NARRATIVE: CASE EVENT DATE: 20220201
